FAERS Safety Report 6328029-7 (Version None)
Quarter: 2009Q3

REPORT INFORMATION
  Report Type: 
  Country: None (occurrence: None)
  Receive Date: 20090825
  Receipt Date: 20080915
  Transmission Date: 20100115
  Serious: No
  Sender: FDA-Public Use
  Company Number: US-ABBOTT-08P-163-0476324-00

PATIENT
  Sex: Female
  Weight: 67.192 kg

DRUGS (1)
  1. SYNTHROID [Suspect]
     Indication: AUTOIMMUNE THYROIDITIS
     Dosage: 100 MCG 6 DAYS A WEEK, 50MCG 1 DAY A WEEK
     Route: 048

REACTIONS (3)
  - ILL-DEFINED DISORDER [None]
  - THYROXINE INCREASED [None]
  - TRI-IODOTHYRONINE DECREASED [None]
